FAERS Safety Report 10634218 (Version 2)
Quarter: 2014Q4

REPORT INFORMATION
  Report Type: Spontaneous
  Country: US (occurrence: None)
  Receive Date: 20141203
  Receipt Date: 20141205
  Transmission Date: 20150529
  Serious: Yes (Life-Threatening, Hospitalization)
  Sender: FDA-Public Use
  Company Number: US-PULSION-2014-0065

PATIENT
  Sex: Female

DRUGS (1)
  1. ICG-PULSION [Suspect]
     Active Substance: INDOCYANINE GREEN
     Dosage: SINGLE DOSE
     Dates: start: 20140919

REACTIONS (2)
  - Stevens-Johnson syndrome [None]
  - Hypersensitivity [None]

NARRATIVE: CASE EVENT DATE: 20140920
